FAERS Safety Report 8032439-X (Version None)
Quarter: 2011Q4

REPORT INFORMATION
  Report Type: 
  Country: None (occurrence: None)
  Receive Date: 20111202
  Receipt Date: 20110923
  Transmission Date: 20120403
  Serious: Yes (Other)
  Sender: FDA-Public Use
  Company Number: PHEH2011US01976

PATIENT
  Sex: Female

DRUGS (1)
  1. FANAPT [Suspect]
     Dosage: 8 MG, BID, ORAL
     Route: 048
     Dates: start: 20110101, end: 20110801

REACTIONS (1)
  - WEIGHT INCREASED [None]
